FAERS Safety Report 5278938-5 (Version None)
Quarter: 2007Q1

REPORT INFORMATION
  Report Type: 
  Country: None (occurrence: None)
  Receive Date: 20070327
  Receipt Date: 20070327
  Transmission Date: 20070707
  Serious: Yes (Other)
  Sender: FDA-Public Use
  Company Number: None

PATIENT
  Age: 38 Year
  Sex: Female
  Weight: 47.1741 kg

DRUGS (1)
  1. LEVOTHYROXINE SODIUM [Suspect]
     Indication: HYPOTHYROIDISM
     Dosage: ONE TAB PO QD
     Route: 048
     Dates: start: 20050219, end: 20050226

REACTIONS (2)
  - PHARMACEUTICAL PRODUCT COMPLAINT [None]
  - RASH [None]
